FAERS Safety Report 9242978 (Version 1)
Quarter: 2013Q2

REPORT INFORMATION
  Report Type: Spontaneous
  Country: CA (occurrence: CA)
  Receive Date: 20130419
  Receipt Date: 20130419
  Transmission Date: 20140414
  Serious: Yes (Other)
  Sender: FDA-Public Use
  Company Number: CA-B.I. PHARMACEUTICALS,INC./RIDGEFIELD-2013-CN-00646CN

PATIENT
  Age: 92 Year
  Sex: Female

DRUGS (2)
  1. PRADAXA [Suspect]
     Dosage: 220 MG
  2. PRADAXA [Suspect]
     Dosage: 300 MG

REACTIONS (2)
  - Transient ischaemic attack [Recovered/Resolved]
  - Incorrect dose administered [Unknown]
